FAERS Safety Report 14615493 (Version 1)
Quarter: 2018Q1

REPORT INFORMATION
  Report Type: Report from Study
  Country: None (occurrence: RO)
  Receive Date: 20180308
  Receipt Date: 20180308
  Transmission Date: 20180509
  Serious: Yes (Death, Hospitalization)
  Sender: FDA-Public Use
  Company Number: RO-ABBVIE-18K-135-2279723-00

PATIENT
  Age: 58 Year
  Sex: Female

DRUGS (1)
  1. DUODOPA [Suspect]
     Active Substance: CARBIDOPA\LEVODOPA
     Indication: PARKINSON^S DISEASE
     Dosage: MD=4.00; CD=1.20; ED=0.50; NRED=0;
     Route: 050
     Dates: start: 20150918, end: 20180305

REACTIONS (3)
  - Pyrexia [Fatal]
  - Cardio-respiratory arrest [Fatal]
  - Infection [Unknown]

NARRATIVE: CASE EVENT DATE: 20180301
